FAERS Safety Report 19790468 (Version 2)
Quarter: 2021Q3

REPORT INFORMATION
  Report Type: Spontaneous
  Country: US (occurrence: US)
  Receive Date: 20210906
  Receipt Date: 20210906
  Transmission Date: 20211014
  Serious: No
  Sender: FDA-Public Use
  Company Number: US-JNJFOC-20210900388

PATIENT

DRUGS (2)
  1. IMODIUM [Suspect]
     Active Substance: LOPERAMIDE HYDROCHLORIDE
     Indication: DIARRHOEA
     Route: 065
  2. KEYTRUDA [Concomitant]
     Active Substance: PEMBROLIZUMAB
     Indication: IMMUNOSUPPRESSANT DRUG THERAPY
     Dosage: IT^S ABOUT ALMOST TWO YEARS

REACTIONS (3)
  - Diarrhoea [Unknown]
  - Flatulence [Unknown]
  - Drug ineffective [Unknown]
